FAERS Safety Report 23484215 (Version 1)
Quarter: 2024Q1

REPORT INFORMATION
  Report Type: Spontaneous
  Country: CN (occurrence: CN)
  Receive Date: 20240206
  Receipt Date: 20240206
  Transmission Date: 20240410
  Serious: Yes (Life-Threatening, Other)
  Sender: FDA-Public Use
  Company Number: CN-MACLEODS PHARMACEUTICALS US LTD-MAC2024045627

PATIENT

DRUGS (1)
  1. LEVOTHYROXINE [Suspect]
     Active Substance: LEVOTHYROXINE\LEVOTHYROXINE SODIUM
     Indication: Product used for unknown indication
     Dosage: 25 MICROGRAM, QD
     Route: 064
     Dates: start: 2016

REACTIONS (10)
  - Tricuspid valve incompetence [Unknown]
  - Tachycardia foetal [Recovered/Resolved]
  - Hyperthyroidism [Recovered/Resolved]
  - Pericardial effusion [Recovered/Resolved]
  - Cardiomegaly [Recovered/Resolved]
  - Ascites [Unknown]
  - Oligohydramnios [Recovered/Resolved]
  - Renal hypoplasia [Unknown]
  - Eyelid oedema [Unknown]
  - Foetal exposure during pregnancy [Unknown]

NARRATIVE: CASE EVENT DATE: 20210101
